FAERS Safety Report 18873008 (Version 3)
Quarter: 2021Q2

REPORT INFORMATION
  Report Type: Spontaneous
  Country: AR (occurrence: AR)
  Receive Date: 20210210
  Receipt Date: 20210401
  Transmission Date: 20210717
  Serious: Yes (Hospitalization, Other)
  Sender: FDA-Public Use
  Company Number: AR-AMGEN-ARGSP2021021627

PATIENT
  Age: 50 Year
  Sex: Female

DRUGS (2)
  1. ENBREL [Suspect]
     Active Substance: ETANERCEPT
     Indication: RHEUMATOID ARTHRITIS
     Dosage: 50 MG (1 DOSE EVERY 15 DAYS)
     Route: 065
     Dates: start: 20120524, end: 202011
  2. ENBREL [Suspect]
     Active Substance: ETANERCEPT
     Dosage: 50 MG (1 DOSE EVERY 15 DAYS)
     Route: 065
     Dates: end: 20200827

REACTIONS (9)
  - Acne [Not Recovered/Not Resolved]
  - Off label use [Not Recovered/Not Resolved]
  - Bone pain [Not Recovered/Not Resolved]
  - Urticaria [Not Recovered/Not Resolved]
  - Poisoning [Not Recovered/Not Resolved]
  - Hypersensitivity [Not Recovered/Not Resolved]
  - Malaise [Not Recovered/Not Resolved]
  - Erythema [Not Recovered/Not Resolved]
  - Pain [Not Recovered/Not Resolved]

NARRATIVE: CASE EVENT DATE: 20120524
